FAERS Safety Report 21425682 (Version 1)
Quarter: 2022Q4

REPORT INFORMATION
  Report Type: Spontaneous
  Country: US (occurrence: US)
  Receive Date: 20221008
  Receipt Date: 20221008
  Transmission Date: 20230112
  Serious: Yes (Other)
  Sender: FDA-Public Use
  Company Number: US-drreddys-LIT/USA/22/0155543

PATIENT
  Sex: Male

DRUGS (4)
  1. PREGABALIN [Suspect]
     Active Substance: PREGABALIN
     Indication: Post-traumatic headache
  2. GABAPENTIN [Suspect]
     Active Substance: GABAPENTIN
     Indication: Post-traumatic headache
  3. ACETAMINOPHEN [Concomitant]
     Active Substance: ACETAMINOPHEN
     Indication: Post-traumatic headache
  4. TOPIRAMATE [Concomitant]
     Active Substance: TOPIRAMATE
     Indication: Post-traumatic headache

REACTIONS (2)
  - Cognitive disorder [Unknown]
  - Sedation [Unknown]
